FAERS Safety Report 17511580 (Version 4)
Quarter: 2021Q4

REPORT INFORMATION
  Report Type: Spontaneous
  Country: DE (occurrence: DE)
  Receive Date: 20200307
  Receipt Date: 20211213
  Transmission Date: 20220303
  Serious: Yes (Death, Hospitalization, Other)
  Sender: FDA-Public Use
  Company Number: DE-002147023-NVSC2020DE039397

PATIENT
  Age: 44 Year
  Sex: Female
  Weight: 65 kg

DRUGS (33)
  1. HYDROMORPHONE [Suspect]
     Active Substance: HYDROMORPHONE
     Indication: Malignant melanoma
     Dosage: 4 MILLIGRAM, TWO TIMES A DAY
     Route: 048
     Dates: start: 20170407, end: 20170706
  2. HYDROMORPHONE [Suspect]
     Active Substance: HYDROMORPHONE
     Indication: Pain
     Dosage: 8 MILLIGRAM, 3 TIMES A DAY
     Route: 048
     Dates: start: 20180226
  3. HYDROMORPHONE [Suspect]
     Active Substance: HYDROMORPHONE
     Dosage: 4 MILLIGRAM, 3 TIMES A DAY
     Route: 048
     Dates: start: 20180516
  4. HYDROMORPHONE [Suspect]
     Active Substance: HYDROMORPHONE
     Dosage: 4 MILLIGRAM, 3 TIMES A DAY
     Route: 048
     Dates: start: 20170707, end: 20180224
  5. HYDROMORPHONE [Suspect]
     Active Substance: HYDROMORPHONE
     Dosage: 8 MILLIGRAM, ONCE A DAY
     Route: 048
     Dates: start: 20180225, end: 20180225
  6. TRAMETINIB [Suspect]
     Active Substance: TRAMETINIB
     Indication: Metastatic malignant melanoma
     Dosage: 2 MILLIGRAM, ONCE A DAY
     Route: 048
     Dates: start: 20161019, end: 20161114
  7. TRAMETINIB [Suspect]
     Active Substance: TRAMETINIB
     Dosage: 2 MILLIGRAM, ONCE A DAY
     Route: 048
     Dates: start: 20161123, end: 20180513
  8. TAFINLAR [Suspect]
     Active Substance: DABRAFENIB MESYLATE
     Indication: Metastatic malignant melanoma
     Dosage: 150 MILLIGRAM, TWO TIMES A DAY (300 MG, DAILY)
     Route: 048
     Dates: start: 20161117, end: 20180513
  9. TAFINLAR [Suspect]
     Active Substance: DABRAFENIB MESYLATE
     Dosage: 150 MILLIGRAM, TWO TIMES A DAY (300 MG, DAILY)
     Route: 048
     Dates: start: 20161019, end: 20161114
  10. HYDROMORPHONE [Concomitant]
     Active Substance: HYDROMORPHONE
     Indication: Malignant melanoma
     Dosage: 1.3 MILLIGRAM PRN
     Route: 048
     Dates: start: 20170407
  11. ABSTRAL [Concomitant]
     Active Substance: FENTANYL CITRATE
     Indication: Product used for unknown indication
     Dosage: 200 MICROGRAM, FOUR TIMES/DAY (800 MG, DAILY)
     Route: 048
     Dates: start: 20180516
  12. MEFLOQUINE HYDROCHLORIDE [Concomitant]
     Active Substance: MEFLOQUINE HYDROCHLORIDE
     Indication: Malignant melanoma
     Dosage: 10 MILLIGRAM, 3 TIMES A DAY (30 MG, DAILY)
     Route: 065
     Dates: start: 20180228, end: 20180303
  13. MCP [Concomitant]
     Active Substance: METOCLOPRAMIDE HYDROCHLORIDE
     Indication: Malignant melanoma
     Dosage: 10 MILLIGRAM, 3 TIMES A DAY (30 MG, DAILY)
     Route: 048
     Dates: start: 20170118
  14. IPILIMUMAB [Concomitant]
     Active Substance: IPILIMUMAB
     Indication: Malignant melanoma
     Dosage: 3 MILLIGRAM/KILOGRAM, EVERY 3 WEEK
     Route: 042
     Dates: start: 20181024, end: 20181024
  15. DEXAMETHASONE [Concomitant]
     Active Substance: DEXAMETHASONE
     Indication: Malignant melanoma
     Dosage: 4 MILLIGRAM, ONCE A DAY
     Route: 048
     Dates: start: 20170829, end: 20171128
  16. CELEBREX [Concomitant]
     Active Substance: CELECOXIB
     Indication: Product used for unknown indication
     Dosage: 400 MILLIGRAM, ONCE A DAY
     Route: 048
     Dates: start: 20180302
  17. IBUPROFEN [Concomitant]
     Active Substance: IBUPROFEN
     Indication: Malignant melanoma
     Dosage: 600 MILLIGRAM, ONCE A DAY
     Route: 048
     Dates: start: 20170214, end: 20170406
  18. Laxans [Concomitant]
     Indication: Product used for unknown indication
     Dosage: 15 GTT DROPS, ONCE A DAY
     Route: 065
     Dates: start: 20180225, end: 20180303
  19. MOVICOL [Concomitant]
     Active Substance: POLYETHYLENE GLYCOL 3350\POTASSIUM CHLORIDE\SODIUM BICARBONATE\SODIUM CHLORIDE
     Indication: Product used for unknown indication
     Dosage: 13.81 GRAM, ONCE A DAY
     Route: 048
     Dates: start: 20170829, end: 20171128
  20. SODIUM PICOSULFATE [Concomitant]
     Active Substance: SODIUM PICOSULFATE
     Indication: Malignant melanoma
     Dosage: 20 GTT DROPS, ONCE A DAY
     Route: 048
     Dates: start: 20170407, end: 20180225
  21. PANTOPRAZOLE [Concomitant]
     Active Substance: PANTOPRAZOLE
     Indication: Malignant melanoma
     Dosage: 40 MILLIGRAM, ONCE A DAY
     Route: 048
     Dates: start: 20170829
  22. LACTULOSE [Concomitant]
     Active Substance: LACTULOSE
     Indication: Product used for unknown indication
     Dosage: 10 GRAM, ONCE A DAY
     Route: 048
     Dates: start: 20180225, end: 20180225
  23. TILIDINE [Concomitant]
     Active Substance: TILIDINE
     Indication: Product used for unknown indication
     Dosage: 50 MILLIGRAM PRN
     Route: 048
     Dates: start: 20161115, end: 20170406
  24. ENOXAPARIN SODIUM [Concomitant]
     Active Substance: ENOXAPARIN SODIUM
     Indication: Product used for unknown indication
     Dosage: 40 MILLIGRAM, ONCE A DAY
     Route: 058
     Dates: start: 20180226, end: 20180303
  25. PREGABALIN [Concomitant]
     Active Substance: PREGABALIN
     Indication: Depressed mood
     Dosage: 100 MILLIGRAM, ONCE A DAY
     Route: 048
     Dates: start: 20180225
  26. PREGABALIN [Concomitant]
     Active Substance: PREGABALIN
     Dosage: 75 MILLIGRAM, ONCE A DAY
     Route: 048
     Dates: start: 20170829, end: 20170905
  27. PEMBROLIZUMAB [Concomitant]
     Active Substance: PEMBROLIZUMAB
     Indication: Product used for unknown indication
     Dosage: 2 MILLIGRAM/KILOGRAM, ONCE A DAY
     Route: 048
     Dates: start: 20180517, end: 20181002
  28. ZOFRAN [Concomitant]
     Active Substance: ONDANSETRON HYDROCHLORIDE
     Indication: Malignant melanoma
     Dosage: 16 MILLIGRAM, ONCE A DAY (8 MG, BID)
     Route: 048
     Dates: start: 20161115, end: 20170307
  29. METAMIZOLE SODIUM [Concomitant]
     Active Substance: METAMIZOLE SODIUM
     Indication: Malignant melanoma
     Dosage: UNK
     Route: 065
  30. METAMIZOLE SODIUM [Concomitant]
     Active Substance: METAMIZOLE SODIUM
     Indication: Abdominal pain
     Dosage: 50 MILLIGRAM  PRN
     Route: 048
     Dates: start: 20161115, end: 20170406
  31. NIVOLUMAB [Concomitant]
     Active Substance: NIVOLUMAB
     Indication: Malignant melanoma
     Dosage: 1 MILLIGRAM/KILOGRAM, 3 WEEKS
     Route: 042
     Dates: start: 20181024, end: 20181024
  32. CIPRALEX [Concomitant]
     Active Substance: ESCITALOPRAM OXALATE
     Indication: Depressed mood
     Dosage: 10 MILLIGRAM, ONCE A DAY
     Route: 048
     Dates: start: 20170518, end: 20180228
  33. Ortoton [Concomitant]
     Indication: Product used for unknown indication
     Dosage: 750 MILLIGRAM
     Route: 048
     Dates: start: 20180516

REACTIONS (5)
  - Metastatic malignant melanoma [Fatal]
  - Malignant neoplasm progression [Fatal]
  - Intracranial pressure increased [Recovered/Resolved]
  - Abdominal pain [Recovered/Resolved]
  - Constipation [Unknown]

NARRATIVE: CASE EVENT DATE: 20170829
